FAERS Safety Report 18146585 (Version 1)
Quarter: 2020Q3

REPORT INFORMATION
  Report Type: Spontaneous
  Country: US (occurrence: US)
  Receive Date: 20200813
  Receipt Date: 20200813
  Transmission Date: 20201103
  Serious: Yes (Hospitalization, Other)
  Sender: FDA-Public Use
  Company Number: US-PURDUE-USA-2020-0160923

PATIENT
  Sex: Male

DRUGS (1)
  1. OXYCONTIN [Suspect]
     Active Substance: OXYCODONE HYDROCHLORIDE
     Indication: PRODUCT USED FOR UNKNOWN INDICATION
     Dosage: UNK
     Route: 048
     Dates: start: 1998, end: 2018

REACTIONS (10)
  - Dependence [Unknown]
  - Blood cholesterol increased [Unknown]
  - Cholecystectomy [Unknown]
  - Tooth loss [Unknown]
  - Type 2 diabetes mellitus [Unknown]
  - Osteitis deformans [Unknown]
  - Hepatic steatosis [Unknown]
  - Constipation [Unknown]
  - Cholelithiasis [Unknown]
  - Sleep deficit [Unknown]

NARRATIVE: CASE EVENT DATE: 1998
